FAERS Safety Report 14506884 (Version 3)
Quarter: 2018Q1

REPORT INFORMATION
  Report Type: Spontaneous
  Country: ES (occurrence: ES)
  Receive Date: 20180208
  Receipt Date: 20180308
  Transmission Date: 20180509
  Serious: Yes (Other)
  Sender: FDA-Public Use
  Company Number: ES-009507513-1706ESP005135

PATIENT
  Age: 35 Year
  Sex: Female

DRUGS (3)
  1. SULPIRIDE [Interacting]
     Active Substance: SULPIRIDE
     Indication: VERTIGO
     Dosage: UNK
     Route: 042
     Dates: start: 20170101, end: 20170101
  2. SULPIRIDE [Interacting]
     Active Substance: SULPIRIDE
     Indication: DIZZINESS
  3. NUVARING [Suspect]
     Active Substance: ETHINYL ESTRADIOL\ETONOGESTREL
     Dosage: THE RING
     Route: 067
     Dates: start: 2007

REACTIONS (6)
  - Dizziness [Unknown]
  - Drug effect decreased [Unknown]
  - Drug interaction [Unknown]
  - Vertigo [Recovered/Resolved]
  - Pregnancy with contraceptive device [Not Recovered/Not Resolved]
  - Unintended pregnancy [Not Recovered/Not Resolved]

NARRATIVE: CASE EVENT DATE: 20170101
